FAERS Safety Report 5268985-1 (Version None)
Quarter: 2007Q1

REPORT INFORMATION
  Report Type: 
  Country: None (occurrence: None)
  Receive Date: 20061212
  Receipt Date: 20040915
  Transmission Date: 20070707
  Serious: Yes (Hospitalization)
  Sender: FDA-Public Use
  Company Number: 2004UW16916

PATIENT
  Age: 78 Year
  Sex: Male
  Weight: 83.4619 kg

DRUGS (6)
  1. ZOLADEX [Suspect]
     Indication: PROSTATE CANCER
     Dosage: 10.8 MG SQ
     Route: 058
     Dates: start: 20040804
  2. ZOLADEX [Suspect]
     Indication: PROSTATE CANCER
     Dosage: 10.8 MG SQ
     Route: 058
     Dates: start: 20020222, end: 20030601
  3. COUMADIN [Concomitant]
  4. ATENOLOL [Concomitant]
  5. ASPIRIN [Concomitant]
  6. ZOCOR [Concomitant]

REACTIONS (8)
  - ANAEMIA [None]
  - APPLICATION SITE BRUISING [None]
  - FAECAL INCONTINENCE [None]
  - HOT FLUSH [None]
  - HYPERHIDROSIS [None]
  - OCCULT BLOOD POSITIVE [None]
  - PROSTATE CANCER RECURRENT [None]
  - PULMONARY EMBOLISM [None]
